FAERS Safety Report 20571065 (Version 1)
Quarter: 2022Q1

REPORT INFORMATION
  Report Type: Spontaneous
  Country: AU (occurrence: AU)
  Receive Date: 20220309
  Receipt Date: 20220309
  Transmission Date: 20220424
  Serious: No
  Sender: FDA-Public Use
  Company Number: AU-LUPIN PHARMACEUTICALS INC.-2022-03151

PATIENT
  Age: 70 Year
  Sex: Female

DRUGS (3)
  1. MINOXIDIL [Suspect]
     Active Substance: MINOXIDIL
     Indication: Lichen planopilaris
     Dosage: UNK (LOW DOSE MINOXIDIL)
     Route: 048
  2. HYDROXYCHLOROQUINE [Suspect]
     Active Substance: HYDROXYCHLOROQUINE
     Indication: Lichen planopilaris
     Dosage: UNK
     Route: 065
  3. SPIRONOLACTONE [Concomitant]
     Active Substance: SPIRONOLACTONE
     Indication: Lichen planopilaris
     Dosage: UNK
     Route: 065

REACTIONS (2)
  - Maculopathy [Unknown]
  - Hypertrichosis [Unknown]
